FAERS Safety Report 25990986 (Version 1)
Quarter: 2025Q4

REPORT INFORMATION
  Report Type: Spontaneous
  Country: GB (occurrence: GB)
  Receive Date: 20251103
  Receipt Date: 20251103
  Transmission Date: 20260118
  Serious: Yes (Death)
  Sender: NOVO NORDISK
  Company Number: GB-NOVOPROD-1549560

PATIENT
  Age: 9 Year

DRUGS (1)
  1. NOVORAPID [Suspect]
     Active Substance: INSULIN ASPART
     Indication: Product used for unknown indication
     Dosage: ADMINISTERING AN OVERDOSE USING AROUND 8 NOVORAPID FLEX PENS

REACTIONS (2)
  - Overdose [Fatal]
  - Prescription drug used without a prescription [Fatal]
